FAERS Safety Report 7295886-X (Version None)
Quarter: 2011Q1

REPORT INFORMATION
  Report Type: 
  Country: None (occurrence: None)
  Receive Date: 20110216
  Receipt Date: 20110207
  Transmission Date: 20110831
  Serious: No
  Sender: FDA-Public Use
  Company Number: DE-ASTRAZENECA-2011SE05941

PATIENT
  Age: 80 Year
  Sex: Female
  Weight: 52 kg

DRUGS (7)
  1. ZOPICLON [Concomitant]
     Indication: SLEEP DISORDER
     Route: 048
     Dates: start: 20100901
  2. SEROQUEL XR [Suspect]
     Indication: DEPRESSION
     Route: 048
     Dates: start: 20101202, end: 20101220
  3. ASPIRIN TAB [Concomitant]
     Indication: CORONARY ARTERY DISEASE
     Route: 048
     Dates: start: 20101209
  4. RAMIPRIL [Concomitant]
     Indication: HYPERTENSION
     Route: 048
     Dates: start: 20090901
  5. MOVICOL [Concomitant]
     Indication: CONSTIPATION
     Route: 048
     Dates: start: 20100901
  6. METHIZOL [Concomitant]
     Indication: HYPERTHYROIDISM
     Route: 048
     Dates: start: 20101201
  7. NOVALGIN [Concomitant]
     Indication: PAIN
     Route: 048
     Dates: start: 20101202

REACTIONS (2)
  - OEDEMA [None]
  - LEUKOPENIA [None]
